FAERS Safety Report 21556185 (Version 1)
Quarter: 2022Q4

REPORT INFORMATION
  Report Type: Spontaneous
  Country: FR (occurrence: FR)
  Receive Date: 20221104
  Receipt Date: 20221104
  Transmission Date: 20230112
  Serious: Yes (Congenital Anomaly)
  Sender: FDA-Public Use
  Company Number: None

PATIENT
  Age: 0 Day
  Sex: Female
  Weight: 3.3 kg

DRUGS (4)
  1. ESOMEPRAZOLE [Suspect]
     Active Substance: ESOMEPRAZOLE
     Indication: Gastric pH decreased
     Dosage: UNIT DOSE : 40 MG, FREQUENCY TIME : 1 DAY, DURATION : 267 DAYS
     Route: 065
     Dates: start: 20210204, end: 20211029
  2. PLAQUENIL [Suspect]
     Active Substance: HYDROXYCHLOROQUINE SULFATE
     Indication: Antiphospholipid syndrome
     Dosage: UNIT DOSE :  400MG, FREQUENCY TIME : 1 DAY, DURATION : 267 DAYS
     Route: 065
     Dates: start: 20210204, end: 20211029
  3. LOVENOX [Suspect]
     Active Substance: ENOXAPARIN SODIUM
     Indication: Anticoagulant therapy
     Dosage: UNIT DOSE :   4000IU, FREQUENCY TIME : 1 DAY, DURATION : 267 DAYS
     Route: 065
     Dates: start: 20210204, end: 20211029
  4. ASPIRIN [Suspect]
     Active Substance: ASPIRIN
     Indication: Anticoagulant therapy
     Dosage: UNIT DOSE  AND STRENGTH : 100MG, FREQUENCY TIME : 1 DAY  , DURATION : 267 DAYS
     Route: 065
     Dates: start: 20210204, end: 20211029

REACTIONS (1)
  - Facial paralysis [Recovered/Resolved with Sequelae]

NARRATIVE: CASE EVENT DATE: 20211029
